FAERS Safety Report 9032640 (Version 1)
Quarter: 2013Q1

REPORT INFORMATION
  Report Type: Spontaneous
  Country: IT (occurrence: IT)
  Receive Date: 20130125
  Receipt Date: 20130125
  Transmission Date: 20140127
  Serious: Yes (Hospitalization)
  Sender: FDA-Public Use
  Company Number: PHHY2013IT006891

PATIENT
  Age: 85 Year
  Sex: Female

DRUGS (8)
  1. METFORMIN [Suspect]
     Indication: DIABETES MELLITUS
     Dosage: 1000 MG, UNK
     Route: 048
     Dates: start: 20120101, end: 20120826
  2. DIAMICRON [Suspect]
     Indication: DIABETES MELLITUS
     Dosage: 120 MG, UNK
     Route: 048
     Dates: start: 20120825, end: 20120826
  3. TORVAST [Concomitant]
  4. CARDIRENE [Concomitant]
  5. MICARDIS [Concomitant]
  6. EFEXOR [Concomitant]
  7. EUTIROX [Concomitant]
  8. PANTORC [Concomitant]

REACTIONS (4)
  - Chest pain [Recovered/Resolved]
  - Dyspnoea [Recovered/Resolved]
  - Dysstasia [Recovered/Resolved]
  - Vomiting [Recovered/Resolved]
